FAERS Safety Report 18151785 (Version 3)
Quarter: 2021Q1

REPORT INFORMATION
  Report Type: Spontaneous
  Country: GB (occurrence: GB)
  Receive Date: 20200814
  Receipt Date: 20210319
  Transmission Date: 20210419
  Serious: Yes (Other)
  Sender: FDA-Public Use
  Company Number: GB-BAYER-2020-169841

PATIENT
  Age: 80 Year
  Sex: Male
  Weight: 78 kg

DRUGS (5)
  1. XOFIGO [Suspect]
     Active Substance: RADIUM RA-223 DICHLORIDE
     Indication: PROSTATE CANCER METASTATIC
     Dosage: 55KBQ/KG
     Route: 042
     Dates: start: 20200703, end: 20200703
  2. XOFIGO [Suspect]
     Active Substance: RADIUM RA-223 DICHLORIDE
     Indication: PROSTATE CANCER METASTATIC
     Dosage: 55KBQ/KG
     Route: 042
     Dates: start: 20200731, end: 20200731
  3. XOFIGO [Suspect]
     Active Substance: RADIUM RA-223 DICHLORIDE
     Indication: PROSTATE CANCER METASTATIC
     Dosage: 55KBQ/KG
     Route: 042
     Dates: start: 20200515, end: 20200515
  4. XOFIGO [Suspect]
     Active Substance: RADIUM RA-223 DICHLORIDE
     Indication: PROSTATE CANCER METASTATIC
     Dosage: 55KBQ/KG
     Route: 042
     Dates: start: 20200828, end: 20200828
  5. XOFIGO [Suspect]
     Active Substance: RADIUM RA-223 DICHLORIDE
     Indication: METASTASES TO BONE
     Dosage: 55KBQ/KG
     Route: 042
     Dates: start: 20200605, end: 20200605

REACTIONS (7)
  - Prostate cancer [None]
  - Bone marrow infiltration [None]
  - General physical health deterioration [None]
  - Anaemia [Recovered/Resolved]
  - Malaise [None]
  - Thrombocytopenia [Recovered/Resolved]
  - Prostatic specific antigen increased [None]

NARRATIVE: CASE EVENT DATE: 202009
